FAERS Safety Report 6255787-2 (Version None)
Quarter: 2009Q3

REPORT INFORMATION
  Report Type: 
  Country: None (occurrence: None)
  Receive Date: 20090703
  Receipt Date: 20070706
  Transmission Date: 20100115
  Serious: Yes (Other)
  Sender: FDA-Public Use
  Company Number: US-ASTRAZENECA-2007UW06146

PATIENT
  Age: 37 Year
  Sex: Female
  Weight: 163.3 kg

DRUGS (8)
  1. SEROQUEL [Suspect]
     Indication: BIPOLAR DISORDER
     Dosage: 25-100 MG
     Route: 048
     Dates: start: 20010625, end: 20050101
  2. SEROQUEL [Suspect]
     Route: 048
     Dates: start: 20020521, end: 20050101
  3. ADIPEX [Concomitant]
     Dates: start: 19910101, end: 19960101
  4. ELAVIL [Concomitant]
     Dates: start: 20051101, end: 20080701
  5. CYMBALTA [Concomitant]
     Dates: start: 20060101
  6. PAXIL [Concomitant]
     Route: 048
     Dates: start: 20000613
  7. NEURONTIN [Concomitant]
     Route: 048
     Dates: start: 20011026
  8. DEPAKOTE [Concomitant]
     Dosage: 200-1500 MG
     Dates: start: 19981124

REACTIONS (7)
  - ARTHRALGIA [None]
  - HERNIA REPAIR [None]
  - NEURITIS [None]
  - NEUROPATHY PERIPHERAL [None]
  - RHEUMATOID ARTHRITIS [None]
  - TYPE 1 DIABETES MELLITUS [None]
  - TYPE 2 DIABETES MELLITUS [None]
